FAERS Safety Report 4651678-9 (Version None)
Quarter: 2005Q2

REPORT INFORMATION
  Report Type: 
  Country: None (occurrence: None)
  Receive Date: 20050404
  Receipt Date: 20041101
  Transmission Date: 20051028
  Serious: No
  Sender: FDA-Public Use
  Company Number: USA041182883

PATIENT
  Age: 57 Year
  Sex: Female
  Weight: 57 kg

DRUGS (7)
  1. CYMBALTA [Suspect]
     Indication: DEPRESSION
     Dosage: 30 MG DAY
     Dates: start: 20041001
  2. NEXIUM [Concomitant]
  3. ZONEGRAN [Concomitant]
  4. DILANTIN [Concomitant]
  5. FLEXERIL [Concomitant]
  6. AMIDRINE [Concomitant]
  7. CITRUCEL(METHYLCELLULOSE) [Concomitant]

REACTIONS (6)
  - ASTHENIA [None]
  - ECCHYMOSIS [None]
  - HEADACHE [None]
  - PRURITUS [None]
  - RASH [None]
  - VASOCONSTRICTION [None]
